FAERS Safety Report 4661924-3 (Version None)
Quarter: 2005Q2

REPORT INFORMATION
  Report Type: 
  Country: None (occurrence: None)
  Receive Date: 20050513
  Receipt Date: 20050504
  Transmission Date: 20051028
  Serious: Yes (Other)
  Sender: FDA-Public Use
  Company Number: US-MERCK-0505USA00664

PATIENT
  Age: 42 Year
  Sex: Male
  Weight: 113 kg

DRUGS (6)
  1. VIOXX [Suspect]
     Indication: ARTHRITIS
     Route: 048
     Dates: start: 20000622, end: 20040901
  2. VIOXX [Suspect]
     Route: 048
     Dates: start: 20000622, end: 20040901
  3. VIOXX [Suspect]
     Indication: SPONDYLITIS
     Route: 048
     Dates: start: 20000622, end: 20040901
  4. VIOXX [Suspect]
     Route: 048
     Dates: start: 20000622, end: 20040901
  5. PREDNISOLONE ACETATE [Concomitant]
     Indication: MYDRIASIS
     Route: 065
  6. SODIUM SULFATE [Concomitant]
     Route: 065

REACTIONS (1)
  - SILENT MYOCARDIAL INFARCTION [None]
